FAERS Safety Report 24314760 (Version 1)
Quarter: 2024Q3

REPORT INFORMATION
  Report Type: Spontaneous
  Country: US (occurrence: US)
  Receive Date: 20240913
  Receipt Date: 20240913
  Transmission Date: 20241017
  Serious: Yes (Other)
  Sender: AUROBINDO
  Company Number: US-MLMSERVICE-20240703-PI118843-00082-1

PATIENT
  Age: 51 Year
  Sex: Male

DRUGS (7)
  1. CARBOPLATIN [Suspect]
     Active Substance: CARBOPLATIN
     Indication: Metastases to lymph nodes
     Dosage: UNK (AREA UNDER THE CURVE [AUC] 5, EVERY 21 DAYS)
     Route: 065
  2. CARBOPLATIN [Suspect]
     Active Substance: CARBOPLATIN
     Indication: Metastases to liver
  3. CARBOPLATIN [Suspect]
     Active Substance: CARBOPLATIN
     Indication: Pancreatic neuroendocrine tumour metastatic
  4. ETOPOSIDE [Suspect]
     Active Substance: ETOPOSIDE
     Indication: Pancreatic neuroendocrine tumour metastatic
     Dosage: 150 MILLIGRAM/SQ. METER ONCE IN 21 DAYS (CYCLE: 1: 100 MG/M2 ON DAYS 1 THROUGH 3 EVERY 21 DAYS INITI
     Route: 065
  5. ETOPOSIDE [Suspect]
     Active Substance: ETOPOSIDE
     Indication: Metastases to liver
     Dosage: 255 MILLIGRAM/SQ. METER, ONCE IN 21 DAYS 85% OF FULL DOSE (100 MG/M2 ON DAYS 1 THROUGH 3) EVERY 21 D
     Route: 065
  6. ETOPOSIDE [Suspect]
     Active Substance: ETOPOSIDE
     Indication: Metastases to lymph nodes
     Dosage: 225 MILLIGRAM/SQ. METER, ONCE IN 21 DAYS (CYCLE: 2: 75% OF FULL DOSE (100 MG/M2 ON DAYS 1 THROUGH 3)
     Route: 065
  7. ETOPOSIDE [Suspect]
     Active Substance: ETOPOSIDE
     Dosage: 100 MILLIGRAM/SQ. METER
     Route: 065

REACTIONS (4)
  - Cytopenia [Unknown]
  - Neutropenia [Unknown]
  - Neuropathy peripheral [Unknown]
  - Thrombocytopenia [Unknown]
